FAERS Safety Report 10009395 (Version 2)
Quarter: 2014Q1

REPORT INFORMATION
  Report Type: Spontaneous
  Country: JP (occurrence: JP)
  Receive Date: 20140313
  Receipt Date: 20140313
  Transmission Date: 20141002
  Serious: Yes (Other)
  Sender: FDA-Public Use
  Company Number: JP-TEVA-464048ISR

PATIENT
  Age: 42 Year
  Sex: Male

DRUGS (14)
  1. CLINDAMYCIN,INJ,600MG1AMPOULE [Suspect]
     Indication: INFECTION
     Dosage: 600 MILLIGRAM DAILY;
     Route: 030
     Dates: start: 20120719, end: 20120723
  2. CLINDAMYCIN,INJ,600MG1AMPOULE [Suspect]
     Dosage: 1200 MILLIGRAM DAILY;
     Route: 030
     Dates: start: 20120724, end: 20120729
  3. PENTCILLIN [Concomitant]
     Indication: INFECTION
     Dosage: 3 GRAM DAILY;
     Route: 030
     Dates: start: 20120716, end: 20120729
  4. XYLOCAINE [Concomitant]
     Indication: INFECTION
     Dosage: 9 ML DAILY;
     Route: 030
     Dates: start: 20120716, end: 20120729
  5. PHENOBAL POWDER [Concomitant]
     Dosage: 1.8 GRAM DAILY;
     Route: 048
  6. DEPAKENE FINE GRANULES [Concomitant]
     Dosage: 9 GRAM DAILY;
     Route: 048
  7. DIAMOX  POW [Concomitant]
     Dosage: .9 GRAM DAILY;
     Route: 048
  8. ALOSENN [Concomitant]
     Route: 048
  9. CALCIUM LACTATE [Concomitant]
     Route: 048
  10. ALFAROL [Concomitant]
     Dosage: 2 ML DAILY;
     Route: 048
  11. BACCIDAL TABLETS [Concomitant]
     Dosage: 50 MILLIGRAM DAILY;
     Route: 048
  12. MAGMITT TAB.330MG [Concomitant]
     Dosage: 990 MILLIGRAM DAILY;
     Route: 048
  13. DALACIN CAPSULES [Concomitant]
     Route: 048
  14. ENTERONON R [Concomitant]
     Dosage: 9 GRAM DAILY;
     Route: 048

REACTIONS (3)
  - Injection site necrosis [Recovered/Resolved]
  - Injection site induration [Recovered/Resolved]
  - Injection site erythema [Recovered/Resolved]
